FAERS Safety Report 8484767-1 (Version None)
Quarter: 2012Q3

REPORT INFORMATION
  Report Type: 
  Country: None (occurrence: None)
  Receive Date: 20120703
  Receipt Date: 20120625
  Transmission Date: 20120928
  Serious: Yes (Hospitalization)
  Sender: FDA-Public Use
  Company Number: US-MYLANLABS-2012S1010692

PATIENT
  Age: 54 Year
  Sex: Female
  Weight: 63.5 kg

DRUGS (4)
  1. ONE-A-DAY /00156401/ [Concomitant]
  2. ESTRATEST [Concomitant]
  3. BUPROPION HYDROCHLORIDE [Suspect]
     Indication: HOT FLUSH
     Route: 048
     Dates: start: 20120330, end: 20120406
  4. ZYRTEC [Concomitant]

REACTIONS (5)
  - ABDOMINAL PAIN [None]
  - INTESTINAL OBSTRUCTION [None]
  - GASTROINTESTINAL INFECTION [None]
  - CONSTIPATION [None]
  - HAEMATOCHEZIA [None]
